FAERS Safety Report 8476520 (Version 2)
Quarter: 2013Q2

REPORT INFORMATION
  Report Type: Report from Study
  Country: KR (occurrence: KR)
  Receive Date: 20120326
  Receipt Date: 20130506
  Transmission Date: 20140414
  Serious: Yes (Death, Life-Threatening, Hospitalization)
  Sender: FDA-Public Use
  Company Number: KR-SANOFI-AVENTIS-2012SA018091

PATIENT
  Age: 66 Year
  Sex: Male
  Weight: 85.3 kg

DRUGS (14)
  1. DOCETAXEL [Suspect]
     Indication: NON-SMALL CELL LUNG CANCER STAGE IV
     Route: 042
     Dates: start: 20111025, end: 20111025
  2. DOCETAXEL [Suspect]
     Indication: NON-SMALL CELL LUNG CANCER STAGE IV
     Route: 042
     Dates: start: 20120110, end: 20120110
  3. BLINDED THERAPY [Suspect]
     Indication: NON-SMALL CELL LUNG CANCER STAGE IV
     Route: 042
     Dates: start: 20111025, end: 20120110
  4. TANTUM [Concomitant]
     Dates: start: 20120118
  5. DARBEPOETIN ALFA [Concomitant]
     Dates: start: 20111229
  6. ACETYLCYSTEINE [Concomitant]
     Dates: start: 20120110
  7. MESULID [Concomitant]
     Dates: start: 20120117
  8. OXYCONTIN [Concomitant]
     Dates: start: 20120117
  9. LYRICA [Concomitant]
     Dates: start: 20111229
  10. MEGESTROL ACETATE [Concomitant]
     Dates: start: 20120118
  11. XYZAL [Concomitant]
     Dates: start: 20111229
  12. METOCLOPRAMIDE [Concomitant]
  13. RAMOSETRON [Concomitant]
  14. DEXAMETHASONE [Concomitant]

REACTIONS (3)
  - Hepatic failure [Unknown]
  - Acute respiratory distress syndrome [Fatal]
  - Pneumonia [Unknown]
